FAERS Safety Report 8656892 (Version 2)
Quarter: 2013Q1

REPORT INFORMATION
  Report Type: Report from Study
  Country: CA (occurrence: CA)
  Receive Date: 20120709
  Receipt Date: 20130117
  Transmission Date: 20140127
  Serious: Yes (Hospitalization)
  Sender: FDA-Public Use
  Company Number: CA-ROCHE-1085057

PATIENT
  Age: 56 Year
  Sex: Female
  Weight: 68.1 kg

DRUGS (8)
  1. RITUXIMAB [Suspect]
     Indication: SJOGREN^S SYNDROME
     Dosage: DAY 1 AND DAY 15
     Route: 042
     Dates: start: 20101213, end: 20111026
  2. ALDACTONE [Concomitant]
     Route: 065
  3. FUROSEMIDE [Concomitant]
     Route: 065
  4. FOLIC ACID [Concomitant]
     Route: 065
  5. PREDNISONE [Concomitant]
     Route: 065
  6. TRAMACET [Concomitant]
     Route: 065
  7. ALENDRONATE [Concomitant]
     Route: 065
  8. LOPERAMIDE [Concomitant]
     Route: 065

REACTIONS (1)
  - Blood urine present [Not Recovered/Not Resolved]
